FAERS Safety Report 25788011 (Version 1)
Quarter: 2025Q3

REPORT INFORMATION
  Report Type: Spontaneous
  Country: EU (occurrence: EU)
  Receive Date: 20250910
  Receipt Date: 20250910
  Transmission Date: 20251020
  Serious: Yes (Hospitalization, Other)
  Sender: MYLAN
  Company Number: None

PATIENT
  Age: 30 Year
  Sex: Female

DRUGS (4)
  1. TRAMADOL [Suspect]
     Active Substance: TRAMADOL
     Indication: Product used for unknown indication
     Dates: start: 20250809, end: 20250809
  2. TRAMADOL [Suspect]
     Active Substance: TRAMADOL
     Route: 048
     Dates: start: 20250809, end: 20250809
  3. TRAMADOL [Suspect]
     Active Substance: TRAMADOL
     Route: 048
     Dates: start: 20250809, end: 20250809
  4. TRAMADOL [Suspect]
     Active Substance: TRAMADOL
     Dates: start: 20250809, end: 20250809

REACTIONS (2)
  - Coma [Recovering/Resolving]
  - Poisoning deliberate [Unknown]

NARRATIVE: CASE EVENT DATE: 20250809
